FAERS Safety Report 9112243 (Version 1)
Quarter: 2013Q1

REPORT INFORMATION
  Report Type: Spontaneous
  Country: US (occurrence: US)
  Receive Date: 20130219
  Receipt Date: 20130219
  Transmission Date: 20140127
  Serious: No
  Sender: FDA-Public Use
  Company Number: US-BRISTOL-MYERS SQUIBB COMPANY-17017526

PATIENT
  Age: 53 Year
  Sex: Female
  Weight: 68.03 kg

DRUGS (2)
  1. ABATACEPT SUBQ INJECTION 125MG/ML [Suspect]
     Indication: RHEUMATOID ARTHRITIS
     Dosage: INTIAL IV ORENCIA
     Route: 058
  2. METHOTREXATE [Concomitant]

REACTIONS (2)
  - Injection site pain [Unknown]
  - Injection site bruising [Unknown]
